FAERS Safety Report 7721812-2 (Version None)
Quarter: 2011Q3

REPORT INFORMATION
  Report Type: 
  Country: None (occurrence: None)
  Receive Date: 20110825
  Receipt Date: 20110819
  Transmission Date: 20111222
  Serious: Yes (Hospitalization)
  Sender: FDA-Public Use
  Company Number: 14750731

PATIENT
  Age: 73 Year
  Sex: Female

DRUGS (4)
  1. APIXABAN [Suspect]
     Indication: EMBOLISM
     Dosage: 5 MILLIGRAM, 1 DAY, ORAL
     Route: 048
     Dates: start: 20090206, end: 20090715
  2. PLACEBO [Suspect]
     Indication: EMBOLISM
     Dates: start: 20090206
  3. WARFARIN SODIUM [Suspect]
     Indication: EMBOLISM
     Dosage: 1 DOSAGE FORM 1 DAY, ORAL
     Route: 048
     Dates: start: 20090206, end: 20090715
  4. ENOXAPARIN SODIUM [Suspect]
     Indication: EMBOLISM
     Dosage: .7 MILLILITER, SC
     Route: 058
     Dates: start: 20090206, end: 20090213

REACTIONS (6)
  - BREAST MASS [None]
  - ADRENAL MASS [None]
  - FIBROADENOMA OF BREAST [None]
  - DRUG HYPERSENSITIVITY [None]
  - HYPERCOAGULATION [None]
  - PULMONARY EMBOLISM [None]
